FAERS Safety Report 11573429 (Version 1)
Quarter: 2015Q3

REPORT INFORMATION
  Report Type: Spontaneous
  Country: US (occurrence: US)
  Receive Date: 20150916
  Receipt Date: 20150916
  Transmission Date: 20151125
  Serious: No
  Sender: FDA-Public Use
  Company Number: US-ELI_LILLY_AND_COMPANY-US200911000448

PATIENT
  Sex: Female

DRUGS (3)
  1. FORTEO [Suspect]
     Active Substance: TERIPARATIDE
     Indication: OSTEOPOROSIS
     Dosage: UNK, UNKNOWN
     Dates: start: 2008
  2. FORTEO [Suspect]
     Active Substance: TERIPARATIDE
     Dosage: UNK, UNKNOWN
  3. FORTEO [Suspect]
     Active Substance: TERIPARATIDE
     Dosage: UNK, UNKNOWN
     Dates: end: 20091020

REACTIONS (9)
  - Noninfective gingivitis [Unknown]
  - Device breakage [Unknown]
  - Loose tooth [Unknown]
  - Tooth erosion [Unknown]
  - Gingival erythema [Unknown]
  - Anxiety [Unknown]
  - Gingival pain [Unknown]
  - Enamel anomaly [Unknown]
  - Eating disorder [Unknown]

NARRATIVE: CASE EVENT DATE: 2008
